FAERS Safety Report 4865229-7 (Version None)
Quarter: 2005Q4

REPORT INFORMATION
  Report Type: 
  Country: None (occurrence: None)
  Receive Date: 20051223
  Receipt Date: 20051219
  Transmission Date: 20060501
  Serious: Yes (Hospitalization)
  Sender: FDA-Public Use
  Company Number: STX1-2002-00995

PATIENT
  Age: 78 Year
  Sex: Female

DRUGS (7)
  1. DIGOXIN [Suspect]
     Indication: ATRIAL FIBRILLATION
     Dosage: 250 PER DAY
     Route: 048
     Dates: end: 20020730
  2. REMINYL [Suspect]
     Dosage: 4MG TWICE PER DAY
     Route: 048
  3. PROPRANOLOL [Suspect]
     Indication: HYPERTENSION
     Dosage: 160MG PER DAY
     Route: 048
  4. WARFARIN [Concomitant]
     Route: 065
  5. ASPIRIN [Concomitant]
     Route: 065
  6. BENDROFLUAZIDE [Concomitant]
     Route: 065
  7. THYROXINE [Concomitant]
     Route: 065

REACTIONS (6)
  - BRADYCARDIA [None]
  - CHEST DISCOMFORT [None]
  - NAUSEA [None]
  - PALPITATIONS [None]
  - THERAPEUTIC AGENT TOXICITY [None]
  - VOMITING [None]
